FAERS Safety Report 16022203 (Version 1)
Quarter: 2019Q2

REPORT INFORMATION
  Report Type: Spontaneous
  Country: US (occurrence: US)
  Receive Date: 20190301
  Receipt Date: 20190301
  Transmission Date: 20190711
  Serious: Yes (Other)
  Sender: FDA-Public Use
  Company Number: None

PATIENT
  Age: 45 Year
  Sex: Male
  Weight: 96.16 kg

DRUGS (1)
  1. HYDROCODENE-ACETAMIN, 5-325 MG DF [Suspect]
     Active Substance: ACETAMINOPHEN\HYDROCODONE BITARTRATE
     Indication: PROCEDURAL PAIN
     Route: 048
     Dates: start: 20190207, end: 20190209

REACTIONS (2)
  - Pruritus [None]
  - Swelling [None]

NARRATIVE: CASE EVENT DATE: 20190206
